FAERS Safety Report 19072286 (Version 1)
Quarter: 2021Q1

REPORT INFORMATION
  Report Type: Spontaneous
  Country: US (occurrence: US)
  Receive Date: 20210326
  Receipt Date: 20210326
  Transmission Date: 20210420
  Serious: Yes (Death)
  Sender: FDA-Public Use
  Company Number: None

PATIENT
  Age: 88 Year
  Sex: Male

DRUGS (1)
  1. ATORVASTATIN (ASTORVASTATIIN CA 40MG TAB) [Suspect]
     Active Substance: ATORVASTATIN CALCIUM
     Dates: start: 20200916, end: 20210206

REACTIONS (5)
  - Hypercapnia [None]
  - Pneumonia [None]
  - Myalgia [None]
  - Necrotising myositis [None]
  - Respiratory failure [None]

NARRATIVE: CASE EVENT DATE: 20210206
